FAERS Safety Report 8889236 (Version 1)
Quarter: 2012Q4

REPORT INFORMATION
  Report Type: 
  Country: US (occurrence: US)
  Receive Date: 20121106
  Receipt Date: 20121106
  Transmission Date: 20130627
  Serious: Yes (Hospitalization)
  Sender: FDA-Public Use
  Company Number: US-GLAXOSMITHKLINE-A0987104A

PATIENT
  Age: 44 Year
  Sex: Female
  Weight: 69.92 kg

DRUGS (5)
  1. BENLYSTA [Suspect]
     Indication: SYSTEMIC LUPUS ERYTHEMATOSUS
     Dosage: 800MG Cyclic
     Route: 042
     Dates: start: 20120530
  2. KEPPRA [Concomitant]
     Dosage: 500MG Per day
  3. PLAQUENIL [Concomitant]
     Dosage: 200MG Per day
  4. PREDNISONE [Concomitant]
     Dosage: 20MG Per day
  5. CLOBETASOL [Concomitant]
     Route: 061

REACTIONS (11)
  - Muscular weakness [Not Recovered/Not Resolved]
  - Pain in extremity [Not Recovered/Not Resolved]
  - Local swelling [Not Recovered/Not Resolved]
  - Blood cholesterol increased [Not Recovered/Not Resolved]
  - Blood potassium decreased [Not Recovered/Not Resolved]
  - Urinary tract infection [Not Recovered/Not Resolved]
  - Pain [Unknown]
  - Urine odour abnormal [Unknown]
  - Haematochezia [Not Recovered/Not Resolved]
  - Weight increased [Not Recovered/Not Resolved]
  - Diarrhoea [Not Recovered/Not Resolved]
